FAERS Safety Report 6221583-5 (Version None)
Quarter: 2009Q2

REPORT INFORMATION
  Report Type: 
  Country: None (occurrence: None)
  Receive Date: 20090610
  Receipt Date: 20090227
  Transmission Date: 20091009
  Serious: Yes (Hospitalization)
  Sender: FDA-Public Use
  Company Number: IT-JNJFOC-20090206222

PATIENT
  Sex: Male

DRUGS (2)
  1. TOPAMAX [Suspect]
  2. TOPAMAX [Suspect]
     Indication: EPILEPSY

REACTIONS (5)
  - DEHYDRATION [None]
  - EPILEPSY [None]
  - HEADACHE [None]
  - PYREXIA [None]
  - SOPOR [None]
